FAERS Safety Report 17734601 (Version 2)
Quarter: 2020Q2

REPORT INFORMATION
  Report Type: Spontaneous
  Country: DE (occurrence: DE)
  Receive Date: 20200501
  Receipt Date: 20200514
  Transmission Date: 20200714
  Serious: Yes (Death, Hospitalization, Other)
  Sender: FDA-Public Use
  Company Number: NVSC2020DE116048

PATIENT
  Age: 75 Year
  Sex: Female

DRUGS (5)
  1. BISOHEXAL [Concomitant]
     Active Substance: BISOPROLOL FUMARATE
     Indication: PRODUCT USED FOR UNKNOWN INDICATION
     Dosage: 1 OT, QD (UNK UNK, QD  (10-25 MG))
     Route: 065
  2. TELMISARTAN. [Concomitant]
     Active Substance: TELMISARTAN
     Indication: PRODUCT USED FOR UNKNOWN INDICATION
     Dosage: 80 MG, QD
     Route: 065
  3. XELEVIA [Concomitant]
     Active Substance: SITAGLIPTIN PHOSPHATE
     Indication: PRODUCT USED FOR UNKNOWN INDICATION
     Dosage: UNK
     Route: 065
  4. SIMVASTATIN. [Concomitant]
     Active Substance: SIMVASTATIN
     Indication: PRODUCT USED FOR UNKNOWN INDICATION
     Dosage: 40 MG
     Route: 065
  5. CARBOPLATIN. [Suspect]
     Active Substance: CARBOPLATIN
     Indication: CHEMOTHERAPY
     Dosage: 300 MG
     Route: 065

REACTIONS (13)
  - Platelet count abnormal [Recovered/Resolved]
  - Syncope [Unknown]
  - Acute kidney injury [Fatal]
  - Gastrointestinal haemorrhage [Recovered/Resolved]
  - Off label use [Unknown]
  - Haematochezia [Unknown]
  - Atypical pneumonia [Unknown]
  - Bone marrow failure [Unknown]
  - Respiratory failure [Fatal]
  - Haematemesis [Unknown]
  - Bone marrow toxicity [Unknown]
  - Pancytopenia [Recovered/Resolved]
  - Haemosiderosis [Unknown]
